FAERS Safety Report 7255440-2 (Version None)
Quarter: 2011Q1

REPORT INFORMATION
  Report Type: 
  Country: None (occurrence: None)
  Receive Date: 20110129
  Receipt Date: 20100419
  Transmission Date: 20110831
  Serious: No
  Sender: FDA-Public Use
  Company Number: US-ABBOTT-10P-163-0640417-00

PATIENT
  Sex: Female
  Weight: 82.628 kg

DRUGS (8)
  1. SLO FE [Concomitant]
     Indication: BLOOD IRON
  2. METFORMIN [Concomitant]
     Indication: DIABETES MELLITUS
  3. PREDNISONE [Concomitant]
     Indication: CROHN'S DISEASE
  4. TYLENOL-500 [Concomitant]
     Indication: PAIN
  5. DIOVAN [Concomitant]
     Indication: HYPERTENSION
  6. DILTIAZEM [Concomitant]
     Indication: HYPERTENSION
  7. HUMIRA [Suspect]
     Indication: CROHN'S DISEASE
     Dates: start: 20100417
  8. VITAMIN D [Concomitant]
     Indication: VITAMIN SUPPLEMENTATION

REACTIONS (2)
  - INJECTION SITE PAIN [None]
  - HEADACHE [None]
